FAERS Safety Report 8136399-2 (Version None)
Quarter: 2012Q1

REPORT INFORMATION
  Report Type: 
  Country: None (occurrence: None)
  Receive Date: 20120214
  Receipt Date: 20120203
  Transmission Date: 20120608
  Serious: Yes (Hospitalization, Other)
  Sender: FDA-Public Use
  Company Number: US-ELI_LILLY_AND_COMPANY-US201103007259

PATIENT
  Sex: Female

DRUGS (1)
  1. FORTEO [Suspect]
     Indication: OSTEOPOROSIS
     Dosage: 20 UG, QD
     Route: 065

REACTIONS (9)
  - RENAL FAILURE [None]
  - HERPES ZOSTER [None]
  - DYSPNOEA [None]
  - FALL [None]
  - MALAISE [None]
  - ASTHENIA [None]
  - INJURY [None]
  - PNEUMONIA [None]
  - PAIN [None]
